FAERS Safety Report 8469754 (Version 2)
Quarter: 2013Q2

REPORT INFORMATION
  Report Type: Spontaneous
  Country: US (occurrence: None)
  Receive Date: 20120305
  Receipt Date: 20120507
  Transmission Date: 20140414
  Serious: Yes (Hospitalization, Other)
  Sender: FDA-Public Use
  Company Number: 1000025442

PATIENT
  Age: 66 Year
  Sex: Male

DRUGS (1)
  1. DALIRESP [Suspect]
     Dates: start: 20110915, end: 20111005

REACTIONS (1)
  - PANCREATITIS [None]
